FAERS Safety Report 7208684-X (Version None)
Quarter: 2011Q1

REPORT INFORMATION
  Report Type: 
  Country: None (occurrence: None)
  Receive Date: 20110104
  Receipt Date: 20101226
  Transmission Date: 20110831
  Serious: No
  Sender: FDA-Public Use
  Company Number: US-PFIZER INC-2010179302

PATIENT
  Sex: Female
  Weight: 61.224 kg

DRUGS (1)
  1. RELISTOR [Suspect]
     Indication: CONSTIPATION
     Dosage: 0.6 ML, UNK
     Dates: start: 20101201

REACTIONS (1)
  - ABDOMINAL DISTENSION [None]
